FAERS Safety Report 10974721 (Version 1)
Quarter: 2015Q2

REPORT INFORMATION
  Report Type: Spontaneous
  Country: US (occurrence: US)
  Receive Date: 20150401
  Receipt Date: 20150401
  Transmission Date: 20150821
  Serious: No
  Sender: FDA-Public Use
  Company Number: US-009507513-1503USA011207

PATIENT
  Age: 73 Year
  Sex: Female

DRUGS (22)
  1. FLEXERIL [Concomitant]
     Active Substance: CYCLOBENZAPRINE HYDROCHLORIDE
  2. FOSAMAX [Suspect]
     Active Substance: ALENDRONATE SODIUM
     Indication: OSTEOPOROSIS
     Dosage: 1 DF, QD
     Route: 048
     Dates: start: 201503, end: 201503
  3. EFFEXOR [Concomitant]
     Active Substance: VENLAFAXINE HYDROCHLORIDE
  4. NEXIUM [Concomitant]
     Active Substance: ESOMEPRAZOLE MAGNESIUM
  5. COZAAR [Concomitant]
     Active Substance: LOSARTAN POTASSIUM
  6. PROVENTIL [Concomitant]
     Active Substance: ALBUTEROL
  7. KLONOPIN [Concomitant]
     Active Substance: CLONAZEPAM
  8. COREG [Concomitant]
     Active Substance: CARVEDILOL
  9. DETROL [Concomitant]
     Active Substance: TOLTERODINE TARTRATE
  10. OMEGA-3 MARINE TRIGLYCERIDES [Concomitant]
     Active Substance: FISH OIL
  11. LORATADINE. [Concomitant]
     Active Substance: LORATADINE
  12. COLACE [Concomitant]
     Active Substance: DOCUSATE SODIUM
  13. MOBIC [Concomitant]
     Active Substance: MELOXICAM
  14. LIPITOR [Concomitant]
     Active Substance: ATORVASTATIN CALCIUM
  15. ASPIRIN. [Concomitant]
     Active Substance: ASPIRIN
  16. OMEGA-3 ACIDS [Concomitant]
     Active Substance: OMEGA-3 FATTY ACIDS
  17. LYSINE [Concomitant]
     Active Substance: LYSINE
  18. VITAMINS (UNSPECIFIED) [Concomitant]
     Active Substance: VITAMINS
  19. KEPPRA [Concomitant]
     Active Substance: LEVETIRACETAM
  20. CHOLECALCIFEROL [Concomitant]
     Active Substance: CHOLECALCIFEROL
  21. FLAXSEED [Concomitant]
     Active Substance: FLAX SEED
  22. PULMICORT TURBUHALER [Concomitant]
     Active Substance: BUDESONIDE

REACTIONS (3)
  - Overdose [Unknown]
  - Nausea [Unknown]
  - Inappropriate schedule of drug administration [Unknown]

NARRATIVE: CASE EVENT DATE: 201503
